FAERS Safety Report 6019320-2 (Version None)
Quarter: 2008Q4

REPORT INFORMATION
  Report Type: 
  Country: None (occurrence: None)
  Receive Date: 20081224
  Receipt Date: 20081216
  Transmission Date: 20090506
  Serious: Yes (Hospitalization)
  Sender: FDA-Public Use
  Company Number: JP-ASTRAZENECA-2008SE05831

PATIENT

DRUGS (3)
  1. BLOPRESS [Suspect]
     Indication: HYPERTENSION
     Route: 048
     Dates: start: 20081213, end: 20081216
  2. TAKEPRON [Concomitant]
     Route: 065
  3. THYRADIN [Concomitant]
     Route: 048

REACTIONS (2)
  - ANGIOEDEMA [None]
  - STOMATITIS [None]
